FAERS Safety Report 7154387-X (Version None)
Quarter: 2010Q4

REPORT INFORMATION
  Report Type: 
  Country: None (occurrence: None)
  Receive Date: 20101213
  Receipt Date: 20101130
  Transmission Date: 20110411
  Serious: Yes (Hospitalization)
  Sender: FDA-Public Use
  Company Number: FR-ELI_LILLY_AND_COMPANY-FR201011007536

PATIENT
  Sex: Male

DRUGS (9)
  1. ZYPREXA [Suspect]
     Dosage: UNK, UNK
     Dates: end: 20100301
  2. ZYPREXA [Suspect]
     Dosage: 5 MG, DAILY (1/D)
     Route: 048
     Dates: start: 20100906, end: 20100922
  3. RISPERDAL CONSTA [Concomitant]
     Dates: start: 20090101, end: 20100827
  4. LOXAPAC [Concomitant]
     Dosage: 90 D/F, DAILY (1/D)
     Route: 048
     Dates: end: 20100922
  5. ABILIFY [Concomitant]
     Dosage: 15 MG, DAILY (1/D)
     Route: 048
     Dates: end: 20100927
  6. IMOVANE [Concomitant]
     Indication: INSOMNIA
     Route: 048
  7. LEPTICUR [Concomitant]
     Indication: DYSKINESIA
     Dosage: 10 MG, UNK
     Route: 048
  8. MODECATE [Concomitant]
     Indication: SCHIZOPHRENIA
     Route: 030
  9. RIVOTRIL [Concomitant]
     Indication: ANXIETY
     Dosage: 10 D/F, UNK
     Route: 048

REACTIONS (1)
  - NEUTROPENIA [None]
